FAERS Safety Report 8985590 (Version 1)
Quarter: 2012Q4

REPORT INFORMATION
  Report Type: Report from Study
  Country: CA (occurrence: CA)
  Receive Date: 20121226
  Receipt Date: 20121226
  Transmission Date: 20130627
  Serious: Yes (Death, Hospitalization)
  Sender: FDA-Public Use
  Company Number: CA-JNJFOC-20121210111

PATIENT
  Weight: 68 kg

DRUGS (1)
  1. REMICADE [Suspect]
     Indication: CROHN^S DISEASE
     Dosage: The patient awaiting approval of remaining 2 induction doses, 5 mg/kg x 68 kg total of 8 vials
     Route: 042
     Dates: start: 20121128

REACTIONS (2)
  - Death [Fatal]
  - Hospitalisation [Unknown]
